FAERS Safety Report 20875882 (Version 1)
Quarter: 2022Q2

REPORT INFORMATION
  Report Type: Spontaneous
  Country: GB (occurrence: GB)
  Receive Date: 20220526
  Receipt Date: 20220526
  Transmission Date: 20220720
  Serious: Yes (Other)
  Sender: FDA-Public Use
  Company Number: GB-TEVA-2022-GB-2039587

PATIENT
  Age: 15 Year
  Sex: Male

DRUGS (7)
  1. DOXORUBICIN [Suspect]
     Active Substance: DOXORUBICIN
     Indication: Neuroblastoma
     Dosage: 3 COURSES; CADO REGIMEN
     Route: 065
  2. CARBOPLATIN [Suspect]
     Active Substance: CARBOPLATIN
     Indication: Neuroblastoma
     Dosage: 3 COURSES; CADO REGIMEN AND CE REGIMEN
     Route: 065
  3. VINCRISTINE [Suspect]
     Active Substance: VINCRISTINE
     Indication: Neuroblastoma
     Dosage: 3 COURSES; CADO REGIMEN
     Route: 065
  4. CYCLOPHOSPHAMIDE [Suspect]
     Active Substance: CYCLOPHOSPHAMIDE
     Indication: Neuroblastoma
     Dosage: 3 COURSES; CADO REGIMEN
     Route: 065
  5. ETOPOSIDE [Suspect]
     Active Substance: ETOPOSIDE
     Indication: Neuroblastoma
     Dosage: 3 COURSES; CADO REGIMEN AND CE REGIMEN
     Route: 065
  6. AXITINIB [Suspect]
     Active Substance: AXITINIB
     Indication: Papillary renal cell carcinoma
     Route: 065
  7. AVELUMAB [Suspect]
     Active Substance: AVELUMAB
     Indication: Papillary renal cell carcinoma
     Route: 065

REACTIONS (3)
  - Metastatic renal cell carcinoma [Unknown]
  - Papillary renal cell carcinoma [Unknown]
  - Drug ineffective [Unknown]
